FAERS Safety Report 5946440-0 (Version None)
Quarter: 2008Q4

REPORT INFORMATION
  Report Type: 
  Country: None (occurrence: None)
  Receive Date: 20081106
  Receipt Date: 20081106
  Transmission Date: 20090506
  Serious: No
  Sender: FDA-Public Use
  Company Number: None

PATIENT
  Age: 76 Year
  Sex: Male
  Weight: 61.6892 kg

DRUGS (1)
  1. ACTONEL [Suspect]
     Indication: OSTEOPOROSIS
     Dosage: MONTHLY PO
     Route: 048
     Dates: start: 20080501, end: 20081001

REACTIONS (7)
  - ARTHRALGIA [None]
  - ERYTHEMA [None]
  - HAND DEFORMITY [None]
  - JOINT SWELLING [None]
  - MUSCLE INJURY [None]
  - MUSCULOSKELETAL PAIN [None]
  - OEDEMA PERIPHERAL [None]
